FAERS Safety Report 14686615 (Version 1)
Quarter: 2018Q1

REPORT INFORMATION
  Report Type: Spontaneous
  Country: DE (occurrence: US)
  Receive Date: 20180327
  Receipt Date: 20180327
  Transmission Date: 20180509
  Serious: Yes (Other)
  Sender: FDA-Public Use
  Company Number: DE-GEHC-2018CSU001215

PATIENT
  Age: 57 Year
  Sex: Female

DRUGS (7)
  1. MAGNEVIST [Suspect]
     Active Substance: GADOPENTETATE DIMEGLUMINE
     Indication: PRODUCT USED FOR UNKNOWN INDICATION
     Dosage: UNK UNK, SINGLE
     Route: 065
     Dates: start: 200407, end: 200407
  2. GADOLINIUM (UNSPECIFIED) [Suspect]
     Active Substance: GADOLINIUM
     Indication: PRODUCT USED FOR UNKNOWN INDICATION
     Dosage: UNK UNK, SINGLE
     Route: 065
     Dates: start: 200104, end: 200104
  3. GADOLINIUM (UNSPECIFIED) [Suspect]
     Active Substance: GADOLINIUM
     Dosage: UNK UNK, SINGLE
     Route: 065
     Dates: start: 200203, end: 200203
  4. GADOLINIUM (UNSPECIFIED) [Suspect]
     Active Substance: GADOLINIUM
     Dosage: UNK UNK, SINGLE
     Route: 065
     Dates: start: 200205, end: 200205
  5. PROHANCE [Suspect]
     Active Substance: GADOTERIDOL
     Dosage: UNK UNK, SINGLE
     Route: 065
     Dates: start: 200610, end: 200610
  6. GADOLINIUM (UNSPECIFIED) [Suspect]
     Active Substance: GADOLINIUM
     Dosage: UNK UNK, SINGLE
     Route: 065
     Dates: start: 200605, end: 200605
  7. PROHANCE [Suspect]
     Active Substance: GADOTERIDOL
     Indication: PRODUCT USED FOR UNKNOWN INDICATION
     Dosage: UNK UNK, SINGLE
     Route: 065
     Dates: start: 200301, end: 200301

REACTIONS (1)
  - Nephrogenic systemic fibrosis [Unknown]

NARRATIVE: CASE EVENT DATE: 2007
